FAERS Safety Report 21130529 (Version 1)
Quarter: 2022Q3

REPORT INFORMATION
  Report Type: Spontaneous
  Country: CN (occurrence: CN)
  Receive Date: 20220726
  Receipt Date: 20220726
  Transmission Date: 20221027
  Serious: Yes (Hospitalization)
  Sender: FDA-Public Use
  Company Number: CN-BRISTOL-MYERS SQUIBB COMPANY-2022-075666

PATIENT
  Age: 62 Year
  Weight: 75 kg

DRUGS (2)
  1. LUSPATERCEPT [Suspect]
     Active Substance: LUSPATERCEPT
     Indication: Product used for unknown indication
     Route: 065
     Dates: start: 20220622
  2. LUSPATERCEPT [Suspect]
     Active Substance: LUSPATERCEPT
     Route: 065
     Dates: start: 20220712

REACTIONS (2)
  - Pyrexia [Unknown]
  - Off label use [Unknown]

NARRATIVE: CASE EVENT DATE: 20220712
